FAERS Safety Report 4360957-4 (Version None)
Quarter: 2004Q2

REPORT INFORMATION
  Report Type: 
  Country: None (occurrence: None)
  Receive Date: 20040514
  Receipt Date: 20040429
  Transmission Date: 20050107
  Serious: Yes (Other)
  Sender: FDA-Public Use
  Company Number: A-US2002-00253

PATIENT
  Age: 75 Year
  Sex: Female

DRUGS (13)
  1. TRACLEER [Suspect]
     Indication: PULMONARY HYPERTENSION
     Dosage: 125 MG, BID, ORAL; 62.5 MG, BID, ORAL
     Route: 048
     Dates: start: 20020403, end: 20020502
  2. TRACLEER [Suspect]
     Indication: PULMONARY HYPERTENSION
     Dosage: 125 MG, BID, ORAL; 62.5 MG, BID, ORAL
     Route: 048
     Dates: start: 20020503, end: 20020528
  3. COUMADIN [Concomitant]
  4. DIGOXIN [Concomitant]
  5. BUMEX [Concomitant]
  6. POTASSIUM CHLORIDE [Concomitant]
  7. NEURONTIN [Concomitant]
  8. ADVAIR DISKUS 100/50 [Concomitant]
  9. ELAVIL [Concomitant]
  10. PREMARIN [Concomitant]
  11. VITAMIN C (ASCORBIC ACID) [Concomitant]
  12. CALCIUM (CALCIUM) [Concomitant]
  13. FLONASE [Concomitant]

REACTIONS (2)
  - ALANINE AMINOTRANSFERASE INCREASED [None]
  - ASPARTATE AMINOTRANSFERASE INCREASED [None]
